FAERS Safety Report 17196491 (Version 2)
Quarter: 2019Q4

REPORT INFORMATION
  Report Type: Spontaneous
  Country: FR (occurrence: FR)
  Receive Date: 20191224
  Receipt Date: 20191230
  Transmission Date: 20200122
  Serious: Yes (Hospitalization)
  Sender: FDA-Public Use
  Company Number: FR-PFIZER INC-2019554191

PATIENT
  Age: 82 Year
  Sex: Female
  Weight: 63.5 kg

DRUGS (18)
  1. PANTOPRAZOLE [Suspect]
     Active Substance: PANTOPRAZOLE
     Indication: GASTRITIS
     Dosage: 20 MILLIGRAM, QD
     Route: 048
     Dates: end: 20190814
  2. VERAPAMIL [Concomitant]
     Active Substance: VERAPAMIL HYDROCHLORIDE
     Dosage: 125 MILLIGRAM, QD
     Route: 048
  3. FOSFOMYCINE [Concomitant]
     Active Substance: FOSFOMYCIN
     Dosage: UNK
     Route: 042
  4. SPIRIVA [Concomitant]
     Active Substance: TIOTROPIUM BROMIDE MONOHYDRATE
     Dosage: UNK UNK, QD
     Route: 055
  5. RELVAR ELLIPTA [FLUTICASONE FUROATE;VILANTEROL TRIFENATATE] [Concomitant]
     Active Substance: FLUTICASONE FUROATE\VILANTEROL TRIFENATATE
     Dosage: UNK UNK, QD
     Route: 055
  6. TAZOBACTAM [Concomitant]
     Active Substance: TAZOBACTAM
     Dosage: UNK
     Route: 042
  7. ATARAX [Concomitant]
     Active Substance: HYDROXYZINE HYDROCHLORIDE
     Dosage: UNK
     Route: 048
  8. GENTAMICINE [GENTAMICIN] [Concomitant]
     Active Substance: GENTAMICIN
     Dosage: UNK
     Route: 042
  9. PARACETAMOL [Concomitant]
     Active Substance: ACETAMINOPHEN
     Dosage: 3000 MILLIGRAM, QD
     Route: 048
  10. CEFOXITIN [Concomitant]
     Active Substance: CEFOXITIN SODIUM
     Dosage: UNK
     Dates: start: 20190822, end: 20190902
  11. ORBENINE [Concomitant]
     Active Substance: CLOXACILLIN SODIUM
     Dosage: UNK
     Route: 042
  12. VENTOLINE [SALBUTAMOL] [Concomitant]
     Active Substance: ALBUTEROL SULFATE
     Dosage: UNK
     Route: 055
  13. GAVISCON [ALGINIC ACID;ALUMINIUM HYDROXIDE GEL, DRIED;MAGNESIUM TRISIL [Concomitant]
     Active Substance: ALGINIC ACID\ALUMINUM HYDROXIDE\MAGNESIUM TRISILICATE
     Dosage: UNK UNK, QD
     Route: 048
  14. MONOPROST [Concomitant]
     Active Substance: LATANOPROST
     Dosage: 2 GTT DROPS, QD
     Route: 047
  15. MIRTAZAPINE. [Concomitant]
     Active Substance: MIRTAZAPINE
     Dosage: 7.5 MILLIGRAM, QD
     Route: 048
  16. GYNO PEVARYL [Concomitant]
     Active Substance: ECONAZOLE NITRATE
     Dosage: UNK
     Route: 067
  17. TRIFLUCAN [Concomitant]
     Active Substance: FLUCONAZOLE
     Dosage: UNK
     Route: 048
  18. CALCIDOSE [CALCIUM CARBONATE;COLECALCIFEROL] [Concomitant]
     Active Substance: CALCIUM CARBONATE\CHOLECALCIFEROL
     Dosage: UNK UNK, Q3MONTHS
     Route: 048

REACTIONS (1)
  - Inappropriate antidiuretic hormone secretion [Recovered/Resolved]

NARRATIVE: CASE EVENT DATE: 20190814
